FAERS Safety Report 10189400 (Version 1)
Quarter: 2014Q2

REPORT INFORMATION
  Report Type: Spontaneous
  Country: GB (occurrence: GB)
  Receive Date: 20140522
  Receipt Date: 20140522
  Transmission Date: 20141212
  Serious: Yes (Hospitalization)
  Sender: FDA-Public Use
  Company Number: GB-BRISTOL-MYERS SQUIBB COMPANY-20750949

PATIENT
  Age: 7 Decade
  Sex: Female

DRUGS (1)
  1. YERVOY [Suspect]
     Dosage: 1 DOSE
     Dates: start: 201405

REACTIONS (1)
  - Nausea [Unknown]
